FAERS Safety Report 13612970 (Version 1)
Quarter: 2017Q2

REPORT INFORMATION
  Report Type: Other
  Country: JP (occurrence: JP)
  Receive Date: 20170605
  Receipt Date: 20170605
  Transmission Date: 20170830
  Serious: Yes (Life-Threatening)
  Sender: FDA-Public Use
  Company Number: JP-AJANTA PHARMA USA INC.-2021541

PATIENT
  Age: 20 Year
  Sex: Female

DRUGS (3)
  1. RISPERIDONE. [Suspect]
     Active Substance: RISPERIDONE
     Indication: DEPRESSION
  2. FLUNITRAZEPAM [Suspect]
     Active Substance: FLUNITRAZEPAM
  3. ASPIRIN. [Suspect]
     Active Substance: ASPIRIN

REACTIONS (9)
  - Electrocardiogram QRS complex prolonged [Unknown]
  - Electrocardiogram QT prolonged [Unknown]
  - Sinus tachycardia [Unknown]
  - Cardiac arrest [Unknown]
  - Altered state of consciousness [Unknown]
  - Bradycardia [Unknown]
  - Respiratory depression [Unknown]
  - Blood pressure decreased [Unknown]
  - Overdose [Unknown]

NARRATIVE: CASE EVENT DATE: 20170302
